APPROVED DRUG PRODUCT: AMOXICILLIN
Active Ingredient: AMOXICILLIN
Strength: 250MG
Dosage Form/Route: CAPSULE;ORAL
Application: A062853 | Product #001
Applicant: TEVA PHARMACEUTICALS USA INC
Approved: Dec 22, 1987 | RLD: No | RS: No | Type: DISCN